FAERS Safety Report 21337477 (Version 4)
Quarter: 2023Q1

REPORT INFORMATION
  Report Type: Report from Study
  Country: CA (occurrence: CA)
  Receive Date: 20220915
  Receipt Date: 20230111
  Transmission Date: 20230418
  Serious: Yes (Other)
  Sender: FDA-Public Use
  Company Number: CA-JNJFOC-20220927474

PATIENT
  Age: 75 Year
  Sex: Male

DRUGS (2)
  1. STELARA [Suspect]
     Active Substance: USTEKINUMAB
     Indication: Crohn^s disease
     Dosage: ON 05-JAN-2023, THE PATIENT RECEIVED HIS 5 TH INJECTION WITH 90 MG DOSE OF USTEKINUMAB AND PARTIAL H
     Route: 058
     Dates: start: 20220524
  2. STELARA [Suspect]
     Active Substance: USTEKINUMAB

REACTIONS (4)
  - Kidney infection [Recovering/Resolving]
  - Nephrolithiasis [Not Recovered/Not Resolved]
  - Abdominal pain [Unknown]
  - Injection site haemorrhage [Unknown]

NARRATIVE: CASE EVENT DATE: 20220101
